FAERS Safety Report 16241214 (Version 2)
Quarter: 2020Q2

REPORT INFORMATION
  Report Type: Spontaneous
  Country: FR (occurrence: FR)
  Receive Date: 20190425
  Receipt Date: 20200512
  Transmission Date: 20200713
  Serious: Yes (Death, Life-Threatening)
  Sender: FDA-Public Use
  Company Number: PHHY2019FR094632

PATIENT
  Sex: Male
  Weight: 2.69 kg

DRUGS (13)
  1. METHADONE [Suspect]
     Active Substance: METHADONE HYDROCHLORIDE
     Indication: DRUG DEPENDENCE
     Dosage: 110 MG, QD
     Route: 064
     Dates: end: 20200204
  2. SULFARLEM [Suspect]
     Active Substance: ANETHOLTRITHION
     Indication: APTYALISM
     Dosage: 4 DF, QD
     Route: 064
     Dates: end: 20200204
  3. BACLOFEN. [Suspect]
     Active Substance: BACLOFEN
     Indication: SUPRANUCLEAR PALSY
     Dosage: 40 MG, QD
     Route: 048
     Dates: end: 20190408
  4. DONORMYL (DOXYLAMINE SUCCINATE\SODIUM PHOSPHATE DIBASIC\SODIUM BROMIDE\SODIUM SULFATE) [Suspect]
     Active Substance: DOXYLAMINE\SODIUM BROMIDE\SODIUM PHOSPHATE, DIBASIC, ANHYDROUS\SODIUM SULFATE
     Indication: INSOMNIA
     Dosage: 15 MG, QD
     Route: 064
     Dates: end: 20200123
  5. LEXOMIL [Suspect]
     Active Substance: BROMAZEPAM
     Indication: ANXIETY
     Route: 064
     Dates: end: 20200204
  6. ZOPICLONE [Suspect]
     Active Substance: ZOPICLONE
     Indication: INSOMNIA
     Dosage: 7.5 MG, QD
     Route: 064
     Dates: end: 20200128
  7. SILODOSIN. [Suspect]
     Active Substance: SILODOSIN
     Indication: BENIGN PROSTATIC HYPERPLASIA
     Dosage: 8 MG, QD
     Route: 048
     Dates: end: 20190404
  8. VENLAFAXINE [Suspect]
     Active Substance: VENLAFAXINE HYDROCHLORIDE
     Indication: DEPRESSION
     Dosage: 225 MG, QD
     Route: 064
     Dates: end: 20200204
  9. MIRTAZAPINE. [Suspect]
     Active Substance: MIRTAZAPINE
     Indication: DEPRESSION
     Dosage: 15 MG, QD
     Route: 064
     Dates: end: 20200130
  10. INNOVAIR [Suspect]
     Active Substance: BECLOMETHASONE DIPROPIONATE\FORMOTEROL
     Indication: RESPIRATORY DISORDER
     Dosage: UNK
     Route: 055
  11. SCOPODERM [Suspect]
     Active Substance: SCOPOLAMINE
     Indication: RESPIRATORY DISORDER
     Dosage: 1 DF, Q72H
     Route: 062
     Dates: start: 20190326, end: 20190408
  12. TERBUTALIN [Suspect]
     Active Substance: TERBUTALINE
     Indication: RESPIRATORY DISORDER
     Dosage: UNK
     Route: 055
  13. NORMACOL [Suspect]
     Active Substance: HERBALS\KARAYA GUM
     Indication: CONSTIPATION
     Dosage: 1 DF, QW
     Route: 054

REACTIONS (4)
  - Respiratory distress [Fatal]
  - Pneumonia aspiration [Fatal]
  - Premature baby [Recovered/Resolved with Sequelae]
  - Withdrawal syndrome [Recovered/Resolved]

NARRATIVE: CASE EVENT DATE: 20190404
